FAERS Safety Report 18484384 (Version 1)
Quarter: 2020Q4

REPORT INFORMATION
  Report Type: Spontaneous
  Country: US (occurrence: US)
  Receive Date: 20201109
  Receipt Date: 20201109
  Transmission Date: 20210114
  Serious: Yes (Hospitalization)
  Sender: FDA-Public Use
  Company Number: US-UNICHEM PHARMACEUTICALS (USA) INC-UCM202010-001304

PATIENT
  Age: 68 Year
  Sex: Male

DRUGS (1)
  1. ALLOPURINOL. [Suspect]
     Active Substance: ALLOPURINOL
     Indication: VENTRICULAR TACHYCARDIA
     Dosage: UNKNOWN

REACTIONS (5)
  - Pancytopenia [Recovered/Resolved]
  - Encephalopathy [Recovered/Resolved]
  - Renal failure [Recovering/Resolving]
  - Hypothermia [Recovered/Resolved]
  - Drug reaction with eosinophilia and systemic symptoms [Recovered/Resolved]
